FAERS Safety Report 9059667 (Version 2)
Quarter: 2013Q1

REPORT INFORMATION
  Report Type: Spontaneous
  Country: HU (occurrence: HU)
  Receive Date: 20130212
  Receipt Date: 20130222
  Transmission Date: 20140127
  Serious: No
  Sender: FDA-Public Use
  Company Number: HU-AMGEN-HUNSP2013008877

PATIENT
  Age: 67 Year
  Sex: Female

DRUGS (3)
  1. ENBREL [Suspect]
     Indication: PRODUCT USED FOR UNKNOWN INDICATION
     Dosage: 50 MG, QWK
     Route: 058
     Dates: start: 20110221
  2. METHYLPREDNISOLONE [Suspect]
     Dosage: UNK
     Dates: start: 2008
  3. SULFASALAZINE [Suspect]
     Dosage: UNK

REACTIONS (5)
  - Nausea [Unknown]
  - Vomiting [Unknown]
  - Hepatic enzyme decreased [Unknown]
  - Therapeutic response unexpected [Unknown]
  - Abdominal pain upper [Unknown]
